FAERS Safety Report 24163159 (Version 1)
Quarter: 2024Q3

REPORT INFORMATION
  Report Type: Spontaneous
  Country: US (occurrence: US)
  Receive Date: 20240801
  Receipt Date: 20240801
  Transmission Date: 20241017
  Serious: Yes (Other)
  Sender: LUNDBECK
  Company Number: US-LUNDBECK-DKLU4002359

PATIENT

DRUGS (1)
  1. VYEPTI [Suspect]
     Active Substance: EPTINEZUMAB\EPTINEZUMAB-JJMR
     Indication: Product used for unknown indication
     Dosage: 100 003
     Route: 041

REACTIONS (4)
  - Throat tightness [Unknown]
  - Hypersensitivity [Unknown]
  - Blood pressure increased [Unknown]
  - Chest discomfort [Unknown]
